FAERS Safety Report 22855858 (Version 2)
Quarter: 2023Q4

REPORT INFORMATION
  Report Type: Spontaneous
  Country: DE (occurrence: DE)
  Receive Date: 20230823
  Receipt Date: 20231106
  Transmission Date: 20240109
  Serious: Yes (Hospitalization)
  Sender: FDA-Public Use
  Company Number: DE-ELI_LILLY_AND_COMPANY-DE202308009717

PATIENT
  Age: 66 Year
  Sex: Male

DRUGS (2)
  1. TALTZ [Suspect]
     Active Substance: IXEKIZUMAB
     Indication: Psoriasis
     Dosage: 80 MG, UNKNOWN
     Route: 058
     Dates: start: 20230126
  2. APIXABAN [Concomitant]
     Active Substance: APIXABAN
     Indication: Product used for unknown indication

REACTIONS (6)
  - Mallory-Weiss syndrome [Unknown]
  - Upper gastrointestinal haemorrhage [Unknown]
  - Renal cyst [Unknown]
  - Gastrooesophageal reflux disease [Unknown]
  - Pneumonia [Unknown]
  - Erysipelas [Unknown]

NARRATIVE: CASE EVENT DATE: 20230201
